FAERS Safety Report 5259884-X (Version None)
Quarter: 2007Q1

REPORT INFORMATION
  Report Type: 
  Country: None (occurrence: None)
  Receive Date: 20070306
  Receipt Date: 20070221
  Transmission Date: 20070707
  Serious: Yes (Hospitalization)
  Sender: FDA-Public Use
  Company Number: T200700247

PATIENT
  Age: 62 Year
  Sex: Male

DRUGS (2)
  1. OPTIRAY 320 [Suspect]
     Dates: start: 20070129, end: 20070129
  2. BARIUM SULFATE (BARIUM SULFATE) [Concomitant]

REACTIONS (1)
  - STEVENS-JOHNSON SYNDROME [None]
